FAERS Safety Report 5810740-5 (Version None)
Quarter: 2008Q3

REPORT INFORMATION
  Report Type: 
  Country: None (occurrence: None)
  Receive Date: 20080710
  Receipt Date: 20080629
  Transmission Date: 20090109
  Serious: Yes (Hospitalization)
  Sender: FDA-Public Use
  Company Number: 20085106

PATIENT
  Sex: Female

DRUGS (11)
  1. LIORESAL [Suspect]
     Indication: MUSCLE SPASTICITY
     Dosage: 300 MCG, DAILY, INTRATHECAL
     Route: 037
  2. CYPROHEPTADINE HCL [Concomitant]
  3. TOPAMAX [Concomitant]
  4. TRILEPTAL [Concomitant]
  5. FLOVENT [Concomitant]
  6. SINGULAIR [Concomitant]
  7. DIASTAT ACUDIAL [Concomitant]
  8. LYRICA [Concomitant]
  9. MIRALAX [Concomitant]
  10. ALBUTEROL [Concomitant]
  11. FLONASE [Concomitant]

REACTIONS (11)
  - CATHETER RELATED COMPLICATION [None]
  - CLONUS [None]
  - CONDITION AGGRAVATED [None]
  - CONSTIPATION [None]
  - CONVULSION [None]
  - DISCOMFORT [None]
  - FATIGUE [None]
  - HYPERTONIA [None]
  - MUSCLE SPASTICITY [None]
  - PYREXIA [None]
  - WITHDRAWAL SYNDROME [None]
